FAERS Safety Report 10353699 (Version 1)
Quarter: 2014Q3

REPORT INFORMATION
  Report Type: Spontaneous
  Country: US (occurrence: None)
  Receive Date: 20140729
  Receipt Date: 20140729
  Transmission Date: 20150326
  Serious: Yes (Congenital Anomaly)
  Sender: FDA-Public Use
  Company Number: None

PATIENT
  Age: 0 Day
  Sex: Female
  Weight: .6 kg

DRUGS (1)
  1. WELLBUTRIN [Suspect]
     Active Substance: BUPROPION HYDROCHLORIDE

REACTIONS (7)
  - Maternal drugs affecting foetus [None]
  - Pulmonary artery dilatation [None]
  - Stillbirth [None]
  - Aortic disorder [None]
  - Univentricular heart [None]
  - Heart disease congenital [None]
  - Transposition of the great vessels [None]

NARRATIVE: CASE EVENT DATE: 20120221
